FAERS Safety Report 8565986 (Version 7)
Quarter: 2012Q4

REPORT INFORMATION
  Report Type: Report from Study
  Country: US (occurrence: US)
  Receive Date: 20120516
  Receipt Date: 20120919
  Transmission Date: 20130627
  Serious: Yes (Other)
  Sender: FDA-Public Use
  Company Number: US-ROCHE-1067396

PATIENT
  Age: 51 Year
  Sex: Male
  Weight: 90.6 kg

DRUGS (20)
  1. COPEGUS [Suspect]
     Indication: HEPATITIS C
     Route: 048
     Dates: start: 20120119, end: 20120313
  2. PEGASYS [Suspect]
     Indication: HEPATITIS C
     Route: 058
     Dates: start: 20120119, end: 20120309
  3. PEGASYS [Suspect]
     Route: 058
     Dates: start: 20111229, end: 20120118
  4. UNSPECIFIED INGREDIENT [Suspect]
     Indication: HEPATITIS C
     Route: 048
     Dates: start: 20111229, end: 20120118
  5. UNSPECIFIED INGREDIENT [Suspect]
     Route: 048
     Dates: start: 20120119, end: 20120313
  6. TEGOBUVIR [Suspect]
     Indication: HEPATITIS C
     Route: 048
     Dates: start: 20111229, end: 20120118
  7. TEGOBUVIR [Suspect]
     Route: 048
     Dates: start: 20120119, end: 20120313
  8. CELEXA [Concomitant]
     Route: 065
     Dates: start: 20120118
  9. TYLENOL [Concomitant]
     Route: 065
     Dates: start: 20120118
  10. RANITIDINE [Concomitant]
  11. ASPIRIN [Concomitant]
     Route: 065
     Dates: start: 2004, end: 20120329
  12. SULINDAC [Concomitant]
     Route: 065
     Dates: start: 20111218, end: 20120327
  13. CELEXA [Concomitant]
  14. CODEINE COUGH SYRUP (UNK INGREDIENTS) [Concomitant]
     Route: 065
     Dates: start: 20120119, end: 20120218
  15. ZITHROMAX Z-PAK [Concomitant]
     Route: 065
     Dates: start: 20120221, end: 20120225
  16. CITALOPRAM HYDROBROMIDE [Concomitant]
  17. PARACETAMOL [Concomitant]
  18. AZITHROMYCIN [Concomitant]
  19. PLACEBO [Suspect]
     Indication: HEPATITIS C
     Route: 048
     Dates: start: 20111229, end: 20120118
  20. COPEGUS [Suspect]
     Indication: HEPATITIS C
     Route: 048
     Dates: start: 20111229, end: 20120118

REACTIONS (21)
  - Rash [Recovered/Resolved]
  - Peroneal nerve palsy [Recovered/Resolved]
  - Dizziness [Not Recovered/Not Resolved]
  - Visual impairment [Not Recovered/Not Resolved]
  - Decreased appetite [Not Recovered/Not Resolved]
  - Hypogeusia [Not Recovered/Not Resolved]
  - Skin tightness [None]
  - Oedema peripheral [None]
  - Cellulitis [None]
  - Dyspepsia [None]
  - Drug hypersensitivity [None]
  - Nephrolithiasis [None]
  - Joint effusion [None]
  - Eyelid ptosis [None]
  - Rash papular [None]
  - Infection [None]
  - Staphylococcal infection [None]
  - Erythema [None]
  - Paraesthesia [None]
  - Dermatitis atopic [None]
  - Muscular weakness [None]
